FAERS Safety Report 15999146 (Version 1)
Quarter: 2019Q1

REPORT INFORMATION
  Report Type: Other
  Country: DE (occurrence: DE)
  Receive Date: 20190225
  Receipt Date: 20190225
  Transmission Date: 20190418
  Serious: Yes (Other)
  Sender: FDA-Public Use
  Company Number: DE-APOTEX-2019AP008084

PATIENT
  Age: 73 Year
  Sex: Male
  Weight: 70.5 kg

DRUGS (12)
  1. BISOPROLOL [Concomitant]
     Active Substance: BISOPROLOL
     Indication: HYPERTENSION
     Dosage: 7.5 MG, DAILY (DAILY DOSE: 7.5 MG MILLIGRAM(S) EVERY DAY)
     Route: 048
     Dates: start: 20160616
  2. ALLOPURINOL. [Concomitant]
     Active Substance: ALLOPURINOL
     Indication: BLOOD URIC ACID INCREASED
     Dosage: 100 MG, EVERY DAY (DAILY DOSE: 100 MG MILLIGRAM(S) EVERY DAY)
     Route: 048
     Dates: start: 20151118
  3. DEKRISTOL [Concomitant]
     Active Substance: CHOLECALCIFEROL
     Indication: VITAMIN D DEFICIENCY
     Dosage: 20000 IU, EVERY 2 WEEKS (DAILY DOSE: 20000 IU INTERNATIONAL UNIT(S) EVERY 2 WEEK)
     Route: 048
     Dates: start: 20151122
  4. KALIUMCHLORID [Concomitant]
     Active Substance: POTASSIUM CHLORIDE
     Indication: HYPOKALAEMIA
     Dosage: 1200 MG, TID, EVERY 8 HOURS (DAILY DOSE: 1200 MG MILLIGRAM(S) EVERY 8 HOUR)
     Route: 048
     Dates: start: 20161129
  5. TORASEMID [Concomitant]
     Active Substance: TORSEMIDE
     Indication: OEDEMA
     Dosage: 20 MG, DAILY (DAILY DOSE: 20 MG MILLIGRAM(S) EVERY DAY)
     Route: 048
     Dates: start: 201701
  6. MAGNESIUM [Concomitant]
     Active Substance: MAGNESIUM
     Indication: MAGNESIUM DEFICIENCY
     Dosage: 600 MG, EVERY DAY (DAILY DOSE: 600 MG MILLIGRAM(S) EVERY DAY)
     Route: 048
     Dates: start: 20170101
  7. CLOPIDOGREL [Suspect]
     Active Substance: CLOPIDOGREL BISULFATE
     Indication: CORONARY ARTERY DISEASE
     Dosage: 75 MG, EVERY DAY (DAILY DOSE: 75 MG MILLIGRAM(S) EVERY DAY)
     Route: 048
     Dates: start: 20160613
  8. MEGLUMINE [Suspect]
     Active Substance: MEGLUMINE
     Indication: AMYLOIDOSIS
     Dosage: UNK, PER DAY (DOSE: 20 OR 80 MG (1XDAY))
     Route: 065
     Dates: start: 20170704
  9. ASPIRIN                            /00002701/ [Interacting]
     Active Substance: ASPIRIN
     Indication: CORONARY ARTERY DISEASE
     Dosage: 100 MG, EVERY DAY (DAILY DOSE: 100 MG MILLIGRAM(S) EVERY DAY)
     Route: 048
     Dates: start: 20160613
  10. DABIGATRAN [Interacting]
     Active Substance: DABIGATRAN
     Indication: ATRIAL FIBRILLATION
     Dosage: 220 MG, DAILY (DAILY DOSE: 220 MG MILLIGRAM(S) EVERY DAY)
     Route: 048
     Dates: start: 201701
  11. CAMELLIA SINENSIS [Concomitant]
     Active Substance: GREEN TEA LEAF
     Indication: AMYLOIDOSIS
     Dosage: 4 DF, DAILY (DAILY DOSE: 4 DF DOSAGE FORM EVERY DAY)
     Route: 048
  12. SPIRONOLACTON [Concomitant]
     Active Substance: SPIRONOLACTONE
     Indication: OEDEMA
     Dosage: 100 MG, DAILY (DAILY DOSE: 100 MG MILLIGRAM(S) EVERY DAY)
     Route: 048
     Dates: start: 20161129

REACTIONS (3)
  - Product administration error [Unknown]
  - Bleeding time prolonged [Recovered/Resolved]
  - Labelled drug-drug interaction medication error [Unknown]

NARRATIVE: CASE EVENT DATE: 20170717
